FAERS Safety Report 24690981 (Version 1)
Quarter: 2024Q4

REPORT INFORMATION
  Report Type: Spontaneous
  Country: GB (occurrence: GB)
  Receive Date: 20241203
  Receipt Date: 20241203
  Transmission Date: 20250115
  Serious: Yes (Hospitalization)
  Sender: MYLAN
  Company Number: GB-MYLANLABS-2024M1106858

PATIENT
  Age: 82 Year
  Sex: Male

DRUGS (8)
  1. TRANEXAMIC ACID [Suspect]
     Active Substance: TRANEXAMIC ACID
     Indication: Haematuria
     Dosage: UNK, RECEIVED 48-HOUR TRIAL
     Route: 065
  2. TRANEXAMIC ACID [Suspect]
     Active Substance: TRANEXAMIC ACID
     Indication: Haematuria
     Dosage: UNK
     Route: 048
  3. TRANEXAMIC ACID [Suspect]
     Active Substance: TRANEXAMIC ACID
     Dosage: 1.5 MILLIGRAM, TID, DOSE TITRATED TO THREE TIMES A DAY
     Route: 048
  4. DEXAMETHASONE [Suspect]
     Active Substance: DEXAMETHASONE
     Indication: Haematuria
     Dosage: UNK
     Route: 065
  5. SALINE [Suspect]
     Active Substance: SODIUM CHLORIDE
     Indication: Haematuria
     Dosage: RECEIVED CONTINUOUS IRRIGATION VIA A 3-WAY CATHETER
     Route: 065
  6. ALUM [Suspect]
     Active Substance: POTASSIUM ALUM
     Indication: Haematuria
     Dosage: RECEIVED IRRIGATION
     Route: 065
  7. ETHAMSYLATE [Suspect]
     Active Substance: ETHAMSYLATE
     Indication: Haematuria
     Dosage: 500 MILLIGRAM, QID
     Route: 048
  8. ASPIRIN [Concomitant]
     Active Substance: ASPIRIN
     Indication: Product used for unknown indication
     Dosage: UNK
     Route: 065

REACTIONS (1)
  - Drug ineffective [Unknown]
